FAERS Safety Report 6222160-2 (Version None)
Quarter: 2009Q2

REPORT INFORMATION
  Report Type: 
  Country: None (occurrence: None)
  Receive Date: 20090611
  Receipt Date: 20090528
  Transmission Date: 20091009
  Serious: Yes (Hospitalization)
  Sender: FDA-Public Use
  Company Number: GB-ROCHE-635467

PATIENT
  Sex: Female

DRUGS (2)
  1. PEGASYS [Suspect]
     Dosage: REPORTED AS 180 UNITS NOT PROVIDED
     Route: 065
     Dates: start: 20090518, end: 20090525
  2. COPEGUS [Suspect]
     Route: 048
     Dates: start: 20090518, end: 20090525

REACTIONS (1)
  - JAUNDICE [None]
